FAERS Safety Report 8175574-8 (Version None)
Quarter: 2012Q1

REPORT INFORMATION
  Report Type: 
  Country: None (occurrence: None)
  Receive Date: 20120301
  Receipt Date: 20120221
  Transmission Date: 20120608
  Serious: Yes (Hospitalization, Other)
  Sender: FDA-Public Use
  Company Number: US-BIOGENIDEC-2011BI041366

PATIENT
  Age: 56 Year
  Sex: Male

DRUGS (2)
  1. LISINOPRIL [Concomitant]
     Indication: HYPERTENSION
  2. TYSABRI [Suspect]
     Indication: MULTIPLE SCLEROSIS
     Route: 042
     Dates: start: 20070801

REACTIONS (3)
  - VITREOUS HAEMORRHAGE [None]
  - DEPRESSED LEVEL OF CONSCIOUSNESS [None]
  - RETINAL HAEMORRHAGE [None]
